FAERS Safety Report 10173713 (Version 1)
Quarter: 2014Q2

REPORT INFORMATION
  Report Type: Spontaneous
  Country: None (occurrence: None)
  Receive Date: 20140514
  Receipt Date: 20140514
  Transmission Date: 20141212
  Serious: No
  Sender: FDA-Public Use
  Company Number: None

PATIENT
  Age: 72 Year
  Sex: Male

DRUGS (5)
  1. IMBRUVICA [Suspect]
     Indication: PRODUCT USED FOR UNKNOWN INDICATION
     Route: 048
     Dates: start: 20140115
  2. LEVOXYL [Concomitant]
  3. ACYCLOVIR [Concomitant]
  4. OMEPRAZOLE [Concomitant]
  5. MEPRON [Concomitant]

REACTIONS (1)
  - Atrial fibrillation [None]
